FAERS Safety Report 7532068-8 (Version None)
Quarter: 2011Q2

REPORT INFORMATION
  Report Type: 
  Country: None (occurrence: None)
  Receive Date: 20110608
  Receipt Date: 20110602
  Transmission Date: 20111010
  Serious: No
  Sender: FDA-Public Use
  Company Number: US-PFIZER INC-2011120565

PATIENT
  Sex: Male
  Weight: 83.9 kg

DRUGS (6)
  1. RAMIPRIL [Concomitant]
     Indication: HYPERTENSION
     Dosage: 10 MG, UNK
  2. AMLODIPINE BESYLATE [Suspect]
     Indication: HYPERTENSION
     Dosage: 5 MG, 1X/DAY
     Route: 048
     Dates: start: 20110501, end: 20110525
  3. NADOLOL [Concomitant]
     Indication: CARDIAC DISORDER
     Dosage: 40 MG, UNK
  4. LOVASTATIN [Concomitant]
     Indication: BLOOD CHOLESTEROL INCREASED
     Dosage: UNK
  5. TERAZOSIN [Concomitant]
     Indication: HYPERTENSION
     Dosage: 5 MG, UNK
  6. AMLODIPINE [Suspect]
     Indication: HYPERTENSION
     Dosage: 5 MG, DAILY
     Route: 048
     Dates: start: 20110301, end: 20110401

REACTIONS (1)
  - RASH GENERALISED [None]
